FAERS Safety Report 25048393 (Version 1)
Quarter: 2025Q1

REPORT INFORMATION
  Report Type: Spontaneous
  Country: DE (occurrence: DE)
  Receive Date: 20250307
  Receipt Date: 20250307
  Transmission Date: 20250408
  Serious: No
  Sender: Unknown Manufacturer
  Company Number: DE-MIRUM PHARMACEUTICALS, INC.-DE-MIR-25-00110

PATIENT

DRUGS (1)
  1. MARALIXIBAT [Suspect]
     Active Substance: MARALIXIBAT
     Indication: Product used for unknown indication
     Dosage: 285 MICROGRAM/KILOGRAM, BID
     Route: 065
     Dates: start: 2024

REACTIONS (1)
  - Transaminases increased [Unknown]
